FAERS Safety Report 5014216-7 (Version None)
Quarter: 2006Q2

REPORT INFORMATION
  Report Type: 
  Country: None (occurrence: None)
  Receive Date: 20060530
  Receipt Date: 20060519
  Transmission Date: 20061013
  Serious: Yes (Other)
  Sender: FDA-Public Use
  Company Number: SG-MERCK-0605SGP00001

PATIENT
  Age: 58 Year
  Sex: Female

DRUGS (4)
  1. FOSAMAX [Suspect]
     Route: 048
  2. PREDNISOLONE [Concomitant]
     Route: 065
  3. GLUCOSAMINE SULFATE [Concomitant]
     Route: 065
  4. NUTRITIONAL SUPPLEMENTS [Concomitant]
     Route: 065

REACTIONS (3)
  - OSTEONECROSIS [None]
  - POST PROCEDURAL HAEMORRHAGE [None]
  - TOOTH INFECTION [None]
